FAERS Safety Report 20410546 (Version 1)
Quarter: 2022Q1

REPORT INFORMATION
  Report Type: Spontaneous
  Country: AU (occurrence: AU)
  Receive Date: 20220201
  Receipt Date: 20220201
  Transmission Date: 20220423
  Serious: Yes (Other)
  Sender: FDA-Public Use
  Company Number: AU-ABBVIE-22K-008-4259706-00

PATIENT

DRUGS (51)
  1. VENETOCLAX [Suspect]
     Active Substance: VENETOCLAX
     Indication: Central nervous system lymphoma
     Route: 048
  2. VENETOCLAX [Suspect]
     Active Substance: VENETOCLAX
     Indication: Central nervous system lymphoma
  3. IBRUTINIB [Suspect]
     Active Substance: IBRUTINIB
     Indication: Chronic lymphocytic leukaemia
     Route: 048
  4. IBRUTINIB [Suspect]
     Active Substance: IBRUTINIB
     Indication: Marginal zone lymphoma
     Route: 048
  5. IBRUTINIB [Suspect]
     Active Substance: IBRUTINIB
     Indication: Mantle cell lymphoma
  6. IBRUTINIB [Suspect]
     Active Substance: IBRUTINIB
     Indication: Central nervous system lymphoma
  7. DOXYCYCLINE HYDROCHLORIDE [Suspect]
     Active Substance: DOXYCYCLINE HYDROCHLORIDE
     Indication: Central nervous system lymphoma
     Route: 065
  8. DOXYCYCLINE HYDROCHLORIDE [Suspect]
     Active Substance: DOXYCYCLINE HYDROCHLORIDE
     Indication: Central nervous system lymphoma
  9. DOXYCYCLINE HYDROCHLORIDE [Suspect]
     Active Substance: DOXYCYCLINE HYDROCHLORIDE
     Indication: Marginal zone lymphoma
  10. DOXYCYCLINE HYDROCHLORIDE [Suspect]
     Active Substance: DOXYCYCLINE HYDROCHLORIDE
     Indication: Mantle cell lymphoma
  11. DOXYCYCLINE HYDROCHLORIDE [Suspect]
     Active Substance: DOXYCYCLINE HYDROCHLORIDE
     Indication: Chronic lymphocytic leukaemia
  12. IFOSFAMIDE [Suspect]
     Active Substance: IFOSFAMIDE
     Indication: Central nervous system lymphoma
     Route: 065
  13. IFOSFAMIDE [Suspect]
     Active Substance: IFOSFAMIDE
     Indication: Central nervous system lymphoma
  14. IFOSFAMIDE [Suspect]
     Active Substance: IFOSFAMIDE
     Indication: Marginal zone lymphoma
  15. IFOSFAMIDE [Suspect]
     Active Substance: IFOSFAMIDE
     Indication: Mantle cell lymphoma
  16. IFOSFAMIDE [Suspect]
     Active Substance: IFOSFAMIDE
     Indication: Chronic lymphocytic leukaemia
  17. CARBOPLATIN [Suspect]
     Active Substance: CARBOPLATIN
     Indication: Central nervous system lymphoma
     Route: 065
  18. CARBOPLATIN [Suspect]
     Active Substance: CARBOPLATIN
     Indication: Central nervous system lymphoma
  19. CARBOPLATIN [Suspect]
     Active Substance: CARBOPLATIN
     Indication: Marginal zone lymphoma
  20. CARBOPLATIN [Suspect]
     Active Substance: CARBOPLATIN
     Indication: Mantle cell lymphoma
  21. CARBOPLATIN [Suspect]
     Active Substance: CARBOPLATIN
     Indication: Chronic lymphocytic leukaemia
  22. TEMOZOLOMIDE [Suspect]
     Active Substance: TEMOZOLOMIDE
     Indication: Central nervous system lymphoma
     Route: 065
  23. TEMOZOLOMIDE [Suspect]
     Active Substance: TEMOZOLOMIDE
     Indication: Central nervous system lymphoma
  24. TEMOZOLOMIDE [Suspect]
     Active Substance: TEMOZOLOMIDE
     Indication: Marginal zone lymphoma
  25. TEMOZOLOMIDE [Suspect]
     Active Substance: TEMOZOLOMIDE
     Indication: Mantle cell lymphoma
  26. TEMOZOLOMIDE [Suspect]
     Active Substance: TEMOZOLOMIDE
     Indication: Chronic lymphocytic leukaemia
  27. ETOPOSIDE [Suspect]
     Active Substance: ETOPOSIDE
     Indication: Central nervous system lymphoma
     Route: 065
  28. ETOPOSIDE [Suspect]
     Active Substance: ETOPOSIDE
     Indication: Central nervous system lymphoma
  29. ETOPOSIDE [Suspect]
     Active Substance: ETOPOSIDE
     Indication: Marginal zone lymphoma
  30. ETOPOSIDE [Suspect]
     Active Substance: ETOPOSIDE
     Indication: Chronic lymphocytic leukaemia
  31. ETOPOSIDE [Suspect]
     Active Substance: ETOPOSIDE
     Indication: Mantle cell lymphoma
  32. OFATUMUMAB [Suspect]
     Active Substance: OFATUMUMAB
     Indication: Central nervous system lymphoma
     Route: 065
  33. OFATUMUMAB [Suspect]
     Active Substance: OFATUMUMAB
     Indication: Central nervous system lymphoma
  34. OFATUMUMAB [Suspect]
     Active Substance: OFATUMUMAB
     Indication: Marginal zone lymphoma
  35. OFATUMUMAB [Suspect]
     Active Substance: OFATUMUMAB
     Indication: Mantle cell lymphoma
  36. OFATUMUMAB [Suspect]
     Active Substance: OFATUMUMAB
     Indication: Marginal zone lymphoma
  37. DEXAMETHASONE [Suspect]
     Active Substance: DEXAMETHASONE
     Indication: Central nervous system lymphoma
     Route: 065
  38. DEXAMETHASONE [Suspect]
     Active Substance: DEXAMETHASONE
     Indication: Central nervous system lymphoma
  39. OBINUTUZUMAB [Suspect]
     Active Substance: OBINUTUZUMAB
     Indication: Central nervous system lymphoma
     Route: 042
  40. OBINUTUZUMAB [Suspect]
     Active Substance: OBINUTUZUMAB
     Indication: Chronic lymphocytic leukaemia
  41. OBINUTUZUMAB [Suspect]
     Active Substance: OBINUTUZUMAB
     Indication: Mantle cell lymphoma
  42. OBINUTUZUMAB [Suspect]
     Active Substance: OBINUTUZUMAB
     Indication: Marginal zone lymphoma
  43. RITUXIMAB [Suspect]
     Active Substance: RITUXIMAB
     Indication: Central nervous system lymphoma
     Route: 065
  44. RITUXIMAB [Suspect]
     Active Substance: RITUXIMAB
     Indication: Chronic lymphocytic leukaemia
  45. RITUXIMAB [Suspect]
     Active Substance: RITUXIMAB
     Indication: Marginal zone lymphoma
  46. RITUXIMAB [Suspect]
     Active Substance: RITUXIMAB
     Indication: Mantle cell lymphoma
  47. METHOTREXATE [Suspect]
     Active Substance: METHOTREXATE
     Indication: Central nervous system lymphoma
     Route: 065
  48. METHOTREXATE [Suspect]
     Active Substance: METHOTREXATE
     Indication: Central nervous system lymphoma
  49. METHOTREXATE [Suspect]
     Active Substance: METHOTREXATE
     Indication: Chronic lymphocytic leukaemia
  50. METHOTREXATE [Suspect]
     Active Substance: METHOTREXATE
     Indication: Mantle cell lymphoma
  51. METHOTREXATE [Suspect]
     Active Substance: METHOTREXATE
     Indication: Marginal zone lymphoma

REACTIONS (10)
  - Atrial fibrillation [Unknown]
  - Cytopenia [Unknown]
  - Haemorrhage [Unknown]
  - Infection [Unknown]
  - Aspergillus infection [Unknown]
  - Febrile neutropenia [Unknown]
  - Anaemia [Unknown]
  - Neutropenia [Unknown]
  - Thrombocytopenia [Unknown]
  - Disease progression [Unknown]
